FAERS Safety Report 16678744 (Version 1)
Quarter: 2019Q3

REPORT INFORMATION
  Report Type: Spontaneous
  Country: NL (occurrence: NO)
  Receive Date: 20190807
  Receipt Date: 20190807
  Transmission Date: 20191004
  Serious: Yes (Life-Threatening)
  Sender: FDA-Public Use
  Company Number: NO-FRESENIUS KABI-FK201908616

PATIENT
  Age: 18 Year
  Sex: Female

DRUGS (13)
  1. CYCLIZINE LACTATE [Suspect]
     Active Substance: CYCLIZINE LACTATE
     Indication: NAUSEA
     Route: 065
     Dates: start: 20190711, end: 20190711
  2. DEXMEDETOMIDINE. [Suspect]
     Active Substance: DEXMEDETOMIDINE
     Indication: CHOLECYSTECTOMY
     Route: 065
     Dates: start: 20190711, end: 20190711
  3. OXYCODONE [Suspect]
     Active Substance: OXYCODONE
     Indication: CHOLECYSTECTOMY
     Route: 065
     Dates: start: 20190711, end: 20190711
  4. CISATRACURIUM. [Suspect]
     Active Substance: CISATRACURIUM
     Indication: CHOLECYSTECTOMY
     Route: 065
     Dates: start: 20190711, end: 20190711
  5. ESOMEPRAZOLE. [Suspect]
     Active Substance: ESOMEPRAZOLE MAGNESIUM
     Indication: CHOLECYSTECTOMY
     Route: 065
     Dates: start: 20190711, end: 20190711
  6. KETOROLAC [Suspect]
     Active Substance: KETOROLAC TROMETHAMINE
     Indication: CHOLECYSTECTOMY
     Route: 065
     Dates: start: 20190711, end: 20190711
  7. PARACETAMOL (MANUFACTURER UNKNOWN) [Suspect]
     Active Substance: ACETAMINOPHEN
     Indication: CHOLECYSTECTOMY
     Route: 065
     Dates: start: 20190711, end: 20190711
  8. FENTANYL. [Suspect]
     Active Substance: FENTANYL
     Indication: CHOLECYSTECTOMY
     Route: 065
     Dates: start: 20190711, end: 20190711
  9. DEXAMETHASONE. [Suspect]
     Active Substance: DEXAMETHASONE
     Indication: CHOLECYSTECTOMY
     Route: 065
     Dates: start: 20190711, end: 20190711
  10. REMIFENTANIL [Suspect]
     Active Substance: REMIFENTANIL
     Indication: CHOLECYSTECTOMY
     Route: 042
     Dates: start: 20190711, end: 20190711
  11. DALTEPARIN SODIUM [Suspect]
     Active Substance: DALTEPARIN SODIUM
     Indication: CHOLECYSTECTOMY
     Route: 058
     Dates: start: 20190711, end: 20190711
  12. PROPOFOL (MANUFACTURER UNKNOWN) [Suspect]
     Active Substance: PROPOFOL
     Indication: CHOLECYSTECTOMY
     Route: 065
     Dates: start: 20190711, end: 20190711
  13. ONDANSETRON (MANUFACTURER UNKNOWN) [Suspect]
     Active Substance: ONDANSETRON
     Indication: CHOLECYSTECTOMY
     Route: 065
     Dates: start: 20190711, end: 20190711

REACTIONS (2)
  - Product use in unapproved indication [Unknown]
  - Anaphylactic reaction [Recovered/Resolved]

NARRATIVE: CASE EVENT DATE: 20190711
